FAERS Safety Report 10679080 (Version 2)
Quarter: 2015Q2

REPORT INFORMATION
  Report Type: Spontaneous
  Country: US (occurrence: US)
  Receive Date: 20141229
  Receipt Date: 20150610
  Transmission Date: 20150821
  Serious: No
  Sender: FDA-Public Use
  Company Number: US-PFIZER INC-2014355085

PATIENT
  Age: 84 Year
  Sex: Female

DRUGS (3)
  1. ADVIL [Suspect]
     Active Substance: IBUPROFEN
     Indication: ABDOMINAL PAIN UPPER
     Dosage: AT THREE, ADVIL DAILY
     Dates: start: 201410
  2. ADVIL [Suspect]
     Active Substance: IBUPROFEN
     Indication: NASOPHARYNGITIS
  3. ADVIL [Suspect]
     Active Substance: IBUPROFEN
     Indication: INSOMNIA

REACTIONS (2)
  - Drug ineffective [Unknown]
  - Intentional product misuse [Unknown]

NARRATIVE: CASE EVENT DATE: 201410
